FAERS Safety Report 4786098-X (Version None)
Quarter: 2005Q3

REPORT INFORMATION
  Report Type: 
  Country: None (occurrence: None)
  Receive Date: 20050930
  Receipt Date: 20050922
  Transmission Date: 20060218
  Serious: Yes (Other)
  Sender: FDA-Public Use
  Company Number: SGB1-2005-00425

PATIENT
  Sex: Male
  Weight: 100 kg

DRUGS (2)
  1. AGRYLIN [Suspect]
     Dosage: 0.5MG, 4X/DAY;QID
  2. HYDROXYUREA [Concomitant]

REACTIONS (2)
  - DRUG INEFFECTIVE [None]
  - PLATELET COUNT INCREASED [None]
